FAERS Safety Report 8932347 (Version 3)
Quarter: 2013Q1

REPORT INFORMATION
  Report Type: Report from Study
  Country: JP (occurrence: JP)
  Receive Date: 20121128
  Receipt Date: 20130305
  Transmission Date: 20140127
  Serious: Yes (Death, Other)
  Sender: FDA-Public Use
  Company Number: JP-009507513-1211JPN010600

PATIENT
  Age: 66 Year
  Sex: Male
  Weight: 55 kg

DRUGS (14)
  1. PEGINTRON [Suspect]
     Indication: CHRONIC HEPATITIS C
     Dosage: 1.5 MICROGRAM PER KILOGRAM, QW
     Route: 058
     Dates: start: 20120307, end: 20120307
  2. PEGINTRON [Suspect]
     Dosage: 0.75 MICROGRAM PER KILOGRAM, QW
     Route: 058
     Dates: start: 20120314, end: 20120523
  3. PEGINTRON [Suspect]
     Dosage: 0.9 MICROGRAM PER KILOGRAM, QW
     Route: 058
     Dates: start: 20120530, end: 20120822
  4. REBETOL [Suspect]
     Indication: CHRONIC HEPATITIS C
     Dosage: 600 MG, QD
     Route: 048
     Dates: start: 20120307, end: 20120321
  5. REBETOL [Suspect]
     Dosage: 400 MG, QD
     Route: 048
     Dates: start: 20120322, end: 20120530
  6. REBETOL [Suspect]
     Dosage: 600 MG, QD
     Route: 048
     Dates: start: 20120531, end: 20120613
  7. REBETOL [Suspect]
     Dosage: 400 MG, QD
     Route: 048
     Dates: start: 20120614, end: 20120822
  8. TELAVIC [Suspect]
     Indication: CHRONIC HEPATITIS C
     Dosage: 2250 MG, QD
     Route: 048
     Dates: start: 20120307, end: 20120530
  9. URSO [Concomitant]
     Indication: CHRONIC HEPATITIS C
     Dosage: 600 MG, QD
     Route: 048
     Dates: end: 20120530
  10. GLUFAST [Concomitant]
     Indication: DIABETES MELLITUS
     Dosage: 30 MG, QD, FORMULATION: POR
     Route: 048
  11. ACTOS [Concomitant]
     Indication: DIABETES MELLITUS
     Dosage: 30 MG, QD
     Route: 048
  12. LONGES [Concomitant]
     Indication: HYPERTENSION
     Dosage: 5 MG, QD, FORMULATION : POR
     Route: 048
  13. KALIMATE [Concomitant]
     Indication: HYPERKALAEMIA
     Dosage: 15 G, QD
     Route: 048
  14. LOXONIN [Concomitant]
     Indication: PROPHYLAXIS
     Dosage: 120 MG, QD
     Route: 048

REACTIONS (3)
  - Lymphoma [Fatal]
  - White blood cell count decreased [Not Recovered/Not Resolved]
  - Haemoglobin decreased [Not Recovered/Not Resolved]
